FAERS Safety Report 4946324-0 (Version None)
Quarter: 2006Q1

REPORT INFORMATION
  Report Type: 
  Country: None (occurrence: None)
  Receive Date: 20060316
  Receipt Date: 20060316
  Transmission Date: 20060701
  Serious: Yes (Hospitalization)
  Sender: FDA-Public Use
  Company Number: None

PATIENT
  Age: 62 Year
  Sex: Male
  Weight: 92.5 kg

DRUGS (6)
  1. LISINOPRIL [Suspect]
  2. VERAPAMIL HCL [Concomitant]
  3. HUMULIN N [Concomitant]
  4. MULTI-VITAMIN [Concomitant]
  5. THIAMINE HCL [Concomitant]
  6. GLIPIZIDE [Concomitant]

REACTIONS (1)
  - ANGIONEUROTIC OEDEMA [None]
